FAERS Safety Report 16690073 (Version 1)
Quarter: 2019Q3

REPORT INFORMATION
  Report Type: Spontaneous
  Country: US (occurrence: US)
  Receive Date: 20190809
  Receipt Date: 20190809
  Transmission Date: 20191004
  Serious: Yes (Hospitalization)
  Sender: FDA-Public Use
  Company Number: PHHY2019US185376

PATIENT
  Age: 68 Year
  Sex: Male

DRUGS (6)
  1. CABERGOLINE. [Concomitant]
     Active Substance: CABERGOLINE
     Dosage: 1.5 MG, QD
     Route: 065
  2. EVEROLIMUS. [Suspect]
     Active Substance: EVEROLIMUS
     Indication: PITUITARY TUMOUR BENIGN
     Dosage: 10 MG, QD
     Route: 065
  3. HYDROCORTISONE. [Concomitant]
     Active Substance: HYDROCORTISONE
     Indication: PITUITARY TUMOUR BENIGN
     Dosage: 10 MG, BID
     Route: 065
  4. LEVOTHYROXINE. [Concomitant]
     Active Substance: LEVOTHYROXINE
     Indication: PITUITARY TUMOUR BENIGN
     Dosage: 100 UG, QD
     Route: 065
  5. CABERGOLINE. [Concomitant]
     Active Substance: CABERGOLINE
     Indication: PITUITARY TUMOUR BENIGN
     Dosage: 0.75 MG, BIW
     Route: 065
  6. CABERGOLINE. [Concomitant]
     Active Substance: CABERGOLINE
     Dosage: 0.75 MG, QD
     Route: 065

REACTIONS (5)
  - Hyperglycaemia [Unknown]
  - Mental status changes [Unknown]
  - Hypogeusia [Unknown]
  - Oral pain [Unknown]
  - Product use in unapproved indication [Unknown]
